FAERS Safety Report 6111489-4 (Version None)
Quarter: 2009Q1

REPORT INFORMATION
  Report Type: 
  Country: None (occurrence: None)
  Receive Date: 20090310
  Receipt Date: 20090310
  Transmission Date: 20090719
  Serious: Yes (Other)
  Sender: FDA-Public Use
  Company Number: None

PATIENT
  Sex: Male
  Weight: 67.5406 kg

DRUGS (1)
  1. ONDANSETRON HCL [Suspect]
     Indication: ANTIEMETIC SUPPORTIVE CARE
     Dosage: 16MG ONCE IV
     Route: 042
     Dates: start: 20090306, end: 20090306

REACTIONS (2)
  - BODY TEMPERATURE INCREASED [None]
  - CHILLS [None]
